FAERS Safety Report 8247517-X (Version None)
Quarter: 2012Q1

REPORT INFORMATION
  Report Type: 
  Country: None (occurrence: None)
  Receive Date: 20120316
  Receipt Date: 20100211
  Transmission Date: 20120608
  Serious: No
  Sender: FDA-Public Use
  Company Number: PHHY2010US08288

PATIENT
  Age: 23 Year
  Sex: Female

DRUGS (1)
  1. ILARIS [Suspect]
     Dosage: , SUBCUTANEOUS
     Route: 058

REACTIONS (1)
  - MATERNAL EXPOSURE DURING PREGNANCY [None]
